FAERS Safety Report 8540786-8 (Version None)
Quarter: 2012Q3

REPORT INFORMATION
  Report Type: 
  Country: None (occurrence: None)
  Receive Date: 20120726
  Receipt Date: 20120628
  Transmission Date: 20120928
  Serious: No
  Sender: FDA-Public Use
  Company Number: US-009507513-1207USA006687

PATIENT

DRUGS (2)
  1. CLARITIN [Suspect]
     Indication: SEASONAL ALLERGY
     Dosage: 5 MG, QAM
  2. CLARITIN [Suspect]
     Dosage: UNK UNK, ONCE
     Route: 048
     Dates: start: 20120628

REACTIONS (2)
  - OVERDOSE [None]
  - ACCIDENTAL DRUG INTAKE BY CHILD [None]
